FAERS Safety Report 24742895 (Version 1)
Quarter: 2024Q4

REPORT INFORMATION
  Report Type: Spontaneous
  Country: GB (occurrence: GB)
  Receive Date: 20241217
  Receipt Date: 20241217
  Transmission Date: 20250115
  Serious: Yes (Death, Other)
  Sender: MYLAN
  Company Number: None

PATIENT
  Age: 74 Year
  Sex: Male

DRUGS (22)
  1. METFORMIN [Suspect]
     Active Substance: METFORMIN HYDROCHLORIDE
     Indication: Product used for unknown indication
     Dosage: 1000 MILLIGRAM, QD (METFORMIN 500 MG TABLETS 2 DAILY WITH FOOD)
     Route: 065
  2. EMPAGLIFLOZIN [Suspect]
     Active Substance: EMPAGLIFLOZIN
     Indication: Product used for unknown indication
     Dosage: 10 MILLIGRAM, QD (EMPAGLIFLOZIN 10 MG TABLETS 1 DAILY WITH FOOD)
     Route: 065
  3. GLYCERIN [Concomitant]
     Active Substance: GLYCERIN
     Dosage: 4 GRAM, QD (4 G SUPPOSITORIES ONE TO BE INSERTED DAILY AS DIRECTED)
     Route: 065
  4. FELODIPINE [Concomitant]
     Active Substance: FELODIPINE
     Dosage: UNK
     Route: 065
  5. RAMIPRIL [Concomitant]
     Active Substance: RAMIPRIL
     Dosage: 5 MILLIGRAM, QD (5 MG CAPSULES ONE TO BE TAKEN DAILY)
     Route: 065
  6. MONTELUKAST [Concomitant]
     Active Substance: MONTELUKAST SODIUM
     Dosage: 10 MILLIGRAM, QD (10 MG TABLETS ONE TO BE TAKEN AT NIGHT)
     Route: 065
  7. LACTULOSE [Concomitant]
     Active Substance: LACTULOSE
     Dosage: UNK UNK, BID (3.1-3.7 G / 5 ML ORAL SOLUTIONONE-THREE 5 ML SPOONFULS TO BE TAKEN UP TO TWICE A DAY)
     Route: 048
  8. ASPIRIN [Concomitant]
     Active Substance: ASPIRIN
     Dosage: 75 MILLIGRAM, QD (75 MG DISPERSIBLE TABLETS ONE TO BE TAKEN EACH DAY)
     Route: 065
  9. SALINE [Concomitant]
     Active Substance: SODIUM CHLORIDE
     Dosage: UNK (2.5 ML UNIT DOSE AMPOULES AS DIRECTED)
     Route: 065
  10. ALFUZOSIN [Concomitant]
     Active Substance: ALFUZOSIN
     Dosage: 10 MILLIGRAM, QD (10 MG MODIFIED-RELEASE TABLETS ONE TO BE TAKEN EACH MORNING)
     Route: 065
  11. COCODAMOL [Concomitant]
     Active Substance: ACETAMINOPHEN\CODEINE PHOSPHATE
     Dosage: UNK UNK, QID (30 MG/500 MG TABLETS ONE OR TWO TO BE TAKEN FOUR TIMES A DAY WHEN REQUIRED)
     Route: 065
  12. MINERAL OIL\PETROLATUM\WAX, EMULSIFYING [Concomitant]
     Active Substance: MINERAL OIL\PETROLATUM\WAX, EMULSIFYING
     Dosage: UNK (AS DIRECTED)
     Route: 065
  13. VENTOLIN [Concomitant]
     Active Substance: ALBUTEROL SULFATE
     Dosage: UNK UNK, QID (VENTOLIN 100 MICROGRAMS / DOSE EVOHALER ONE OR TWO PUFFS TO BE INHALED FOUR TIMES A DA
     Route: 055
  14. CALCIUM\CHOLECALCIFEROL [Concomitant]
     Active Substance: CALCIUM\CHOLECALCIFEROL
     Dosage: 1 DOSAGE FORM, QD (CHEWABLE TABLETS ONE TO BE TAKEN IN THE MORNING)
     Route: 065
  15. SOLIFENACIN [Concomitant]
     Active Substance: SOLIFENACIN
     Dosage: 5 MILLIGRAM, QD (5 MG TABLETS ONE TO BE TAKEN EACH DAY)
     Route: 065
  16. CARBOCYSTEINE [Concomitant]
     Active Substance: CARBOCYSTEINE
     Dosage: 2 DOSAGE FORM, Q8H (375 MG CAPSULES TWO TO BE TAKEN THREE TIMES A DAY)
     Route: 065
  17. TRELEGY ELLIPTA [Concomitant]
     Active Substance: FLUTICASONE FUROATE\UMECLIDINIUM BROMIDE\VILANTEROL TRIFENATATE
     Dosage: 1 DOSAGE FORM, QD (92 / 55 / 22 MICROGRAMS / DOSE DRY POWDER INHALER ONE PUFF ONCE DAILY)
     Route: 055
  18. MIZOLASTINE [Concomitant]
     Active Substance: MIZOLASTINE
     Dosage: 10 MILLIGRAM, QD (10 MG MODIFIED-RELEASE TABLETS ONE TO BE TAKEN EACH DAY)
     Route: 065
  19. RANITIDINE HYDROCHLORIDE [Concomitant]
     Active Substance: RANITIDINE HYDROCHLORIDE
     Dosage: UNK UNK, BID (PEPTAC LIQUID PEPPERMINT 10-20 ML TO BE TAKEN AFTER MEALS AND AT BEDTIME)
     Route: 065
  20. FOLIC ACID [Concomitant]
     Active Substance: FOLIC ACID
     Dosage: 5 MILLIGRAM, QD (5 MG TABLETS ONE TO BE TAKEN EACH DAY)
     Route: 065
  21. ALBUTEROL [Concomitant]
     Active Substance: ALBUTEROL
     Dosage: 1 DOSAGE FORM, QID (2.5 MG / 2.5 ML NEBULISER LIQUID UNIT DOSE VIALSONE DOSE TO BE INHALED FOUR TIME
     Route: 055
  22. GLICLAZIDE [Concomitant]
     Active Substance: GLICLAZIDE
     Dosage: 40 MILLIGRAM, QD (WITH FOOD)
     Route: 065
     Dates: end: 20241205

REACTIONS (2)
  - Diabetic ketoacidosis [Fatal]
  - Lactic acidosis [Not Recovered/Not Resolved]
